FAERS Safety Report 5337829-1 (Version None)
Quarter: 2007Q2

REPORT INFORMATION
  Report Type: 
  Country: None (occurrence: None)
  Receive Date: 20070308
  Receipt Date: 20061229
  Transmission Date: 20071010
  Serious: No
  Sender: FDA-Public Use
  Company Number: 2007-BP-00018BP

PATIENT
  Sex: Female

DRUGS (2)
  1. SPIRIVA [Suspect]
     Indication: CHRONIC OBSTRUCTIVE PULMONARY DISEASE
     Dosage: 18 MCG (18 MCG, 1 CAP QD/2 PUFFS), IH
     Route: 055
     Dates: start: 20061227
  2. FORADIL [Concomitant]

REACTIONS (2)
  - DYSPNOEA [None]
  - NERVOUSNESS [None]
